FAERS Safety Report 10700428 (Version 2)
Quarter: 2015Q1

REPORT INFORMATION
  Report Type: Report from Study
  Country: JP (occurrence: JP)
  Receive Date: 20150109
  Receipt Date: 20150223
  Transmission Date: 20150721
  Serious: Yes (Other)
  Sender: FDA-Public Use
  Company Number: JP-009507513-1501JPN001462

PATIENT
  Age: 57 Year
  Sex: Male
  Weight: 63 kg

DRUGS (6)
  1. PEGINTRON [Suspect]
     Active Substance: PEGINTERFERON ALFA-2B
     Indication: CHRONIC HEPATITIS C
     Dosage: 1.5 MICROGRAM PER KILOGRAM, QW
     Route: 058
     Dates: start: 20140728, end: 2014
  2. PEGINTRON [Suspect]
     Active Substance: PEGINTERFERON ALFA-2B
     Dosage: 0.7 MICROGRAM PER KILOGRAM, QW
     Route: 058
     Dates: start: 20140805, end: 201408
  3. PEGINTRON [Suspect]
     Active Substance: PEGINTERFERON ALFA-2B
     Dosage: 1.5 MICROGRAM PER KILOGRAM, QW
     Route: 058
     Dates: start: 20140812
  4. SIMEPREVIR [Suspect]
     Active Substance: SIMEPREVIR
     Dosage: 100 MG, QD
     Route: 048
     Dates: start: 20140728, end: 20141021
  5. RIBAVIRIN. [Suspect]
     Active Substance: RIBAVIRIN
     Indication: CHRONIC HEPATITIS C
     Dosage: 800 MG, QD
     Route: 048
     Dates: start: 20140728
  6. ZOLPIDEM TARTRATE. [Concomitant]
     Active Substance: ZOLPIDEM TARTRATE
     Dosage: 1 DF, QD
     Route: 048
     Dates: start: 20140805, end: 20140811

REACTIONS (3)
  - Platelet count decreased [Recovered/Resolved]
  - Pyrexia [Recovered/Resolved]
  - Insomnia [Recovered/Resolved]

NARRATIVE: CASE EVENT DATE: 20140728
